FAERS Safety Report 8528876-7 (Version None)
Quarter: 2012Q3

REPORT INFORMATION
  Report Type: 
  Country: None (occurrence: None)
  Receive Date: 20120723
  Receipt Date: 20120717
  Transmission Date: 20120928
  Serious: No
  Sender: FDA-Public Use
  Company Number: US-PFIZER INC-2012173348

PATIENT
  Age: 51 Year
  Sex: Male
  Weight: 104 kg

DRUGS (3)
  1. LYRICA [Suspect]
     Indication: BACK PAIN
     Dosage: 50 MG, 3X/DAY
     Dates: start: 20120101
  2. INDERAL [Concomitant]
     Indication: HYPERTENSION
     Dosage: 20 MG, 2X/DAY
  3. CYMBALTA [Concomitant]
     Dosage: 60 MG, UNK

REACTIONS (2)
  - DYSKINESIA [None]
  - BLOOD ALKALINE PHOSPHATASE INCREASED [None]
